FAERS Safety Report 9014569 (Version 1)
Quarter: 2013Q1

REPORT INFORMATION
  Report Type: Spontaneous
  Country: US (occurrence: US)
  Receive Date: 20130115
  Receipt Date: 20130115
  Transmission Date: 20140127
  Serious: No
  Sender: FDA-Public Use
  Company Number: US-NOVEN-12US005446

PATIENT
  Sex: Female

DRUGS (3)
  1. FENTANYL [Suspect]
     Indication: PAIN
     Dosage: 100 UG/HR Q 48 HRS
     Route: 062
     Dates: start: 201209
  2. FENTANYL [Suspect]
     Dosage: 100 UG/HR Q 48HRS
     Route: 062
     Dates: start: 201209
  3. VICODIN [Concomitant]
     Indication: PAIN
     Dosage: 10 TABS DAILY
     Route: 048

REACTIONS (4)
  - Inadequate analgesia [Not Recovered/Not Resolved]
  - Drug withdrawal syndrome [Not Recovered/Not Resolved]
  - Drug administration error [Not Recovered/Not Resolved]
  - Product quality issue [Not Recovered/Not Resolved]
